FAERS Safety Report 10549223 (Version 2)
Quarter: 2014Q4

REPORT INFORMATION
  Report Type: Spontaneous
  Country: GB (occurrence: GB)
  Receive Date: 20141028
  Receipt Date: 20141124
  Transmission Date: 20150529
  Serious: Yes (Life-Threatening, Hospitalization)
  Sender: FDA-Public Use
  Company Number: GB-JNJFOC-20141011202

PATIENT
  Age: 34 Year
  Sex: Female
  Weight: 70.4 kg

DRUGS (3)
  1. HALOPERIDOL. [Suspect]
     Active Substance: HALOPERIDOL
     Indication: AGITATION
     Route: 048
     Dates: start: 20140817, end: 20140918
  2. QUETIAPINE [Concomitant]
     Active Substance: QUETIAPINE
     Indication: HYPOMANIA
     Route: 048
     Dates: start: 20140913, end: 20140918
  3. CERAZETTE [Concomitant]
     Active Substance: DESOGESTREL
     Indication: CONTRACEPTION
     Route: 048
     Dates: start: 20140804, end: 20140918

REACTIONS (6)
  - Body temperature increased [Recovering/Resolving]
  - Coma scale abnormal [Recovering/Resolving]
  - Blood creatine phosphokinase increased [Recovering/Resolving]
  - Oxygen saturation decreased [Recovering/Resolving]
  - Neuroleptic malignant syndrome [Recovering/Resolving]
  - Respiration abnormal [Recovering/Resolving]

NARRATIVE: CASE EVENT DATE: 20140918
